FAERS Safety Report 7990095-0 (Version None)
Quarter: 2011Q4

REPORT INFORMATION
  Report Type: 
  Country: None (occurrence: None)
  Receive Date: 20111219
  Receipt Date: 20110823
  Transmission Date: 20120403
  Serious: No
  Sender: FDA-Public Use
  Company Number: US-ASTRAZENECA-2011SE50753

PATIENT

DRUGS (10)
  1. CRESTOR [Suspect]
     Route: 048
  2. ADVAIR DISKUS 100/50 [Concomitant]
  3. NIASPAN [Concomitant]
  4. ESTRADIOL-NORETH [Concomitant]
  5. ALENDRONATE SODIUM [Concomitant]
  6. METHYLPREDNISOLONE [Concomitant]
  7. COMBIVENT [Concomitant]
  8. FLUTICASONE PROPIONATE [Concomitant]
  9. HYDROCHLOROTHIAZIDE [Concomitant]
  10. POTASSIUM CL [Concomitant]

REACTIONS (1)
  - PAIN [None]
